FAERS Safety Report 6120093-3 (Version None)
Quarter: 2009Q1

REPORT INFORMATION
  Report Type: 
  Country: None (occurrence: None)
  Receive Date: 20090311
  Receipt Date: 20090211
  Transmission Date: 20090719
  Serious: Yes (Other)
  Sender: FDA-Public Use
  Company Number: DAB-2009-00001

PATIENT
  Age: 7 Year
  Sex: Male

DRUGS (6)
  1. EPIRUBICIN [Suspect]
     Indication: RHABDOMYOSARCOMA
  2. DACTINOMYCIN [Suspect]
     Indication: RHABDOMYOSARCOMA
     Dosage: INTRAVENOUS
     Route: 042
  3. ETOPOSIDE [Suspect]
     Indication: RHABDOMYOSARCOMA
  4. IFOSFAMIDE [Suspect]
     Indication: RHABDOMYOSARCOMA
  5. CARBOPLATIN [Suspect]
     Indication: RHABDOMYOSARCOMA
  6. VINCRISTINE SULFATE [Suspect]
     Indication: RHABDOMYOSARCOMA

REACTIONS (1)
  - THYROID CANCER [None]
